FAERS Safety Report 8068007-3 (Version None)
Quarter: 2012Q1

REPORT INFORMATION
  Report Type: 
  Country: None (occurrence: None)
  Receive Date: 20120124
  Receipt Date: 20110926
  Transmission Date: 20120608
  Serious: No
  Sender: FDA-Public Use
  Company Number: US-AMGEN-USASP2011049492

PATIENT
  Age: 84 Year
  Sex: Female

DRUGS (8)
  1. INDERAL [Concomitant]
  2. MULTIVITAMIN [Concomitant]
  3. VITAMIN D [Concomitant]
  4. PROLIA [Suspect]
     Indication: OSTEOPOROSIS POSTMENOPAUSAL
     Dosage: 60 MG, Q6MO
     Dates: start: 20110805
  5. PROCARDIA [Concomitant]
  6. POTASSIUM CHLORIDE [Concomitant]
  7. OSCAL [Concomitant]
  8. DIOVAN [Concomitant]

REACTIONS (1)
  - NASOPHARYNGITIS [None]
